FAERS Safety Report 18749562 (Version 1)
Quarter: 2021Q1

REPORT INFORMATION
  Report Type: Other
  Country: US (occurrence: US)
  Receive Date: 20210116
  Receipt Date: 20210116
  Transmission Date: 20210419
  Serious: Yes (Other)
  Sender: FDA-Public Use
  Company Number: US-ROCHE-2336304

PATIENT
  Age: 74 Year
  Sex: Female
  Weight: 86.26 kg

DRUGS (39)
  1. ESBRIET [Suspect]
     Active Substance: PIRFENIDONE
     Indication: SYSTEMIC SCLERODERMA
  2. PROCARDIA XL [Concomitant]
     Active Substance: NIFEDIPINE
  3. AMBIEN [Concomitant]
     Active Substance: ZOLPIDEM TARTRATE
  4. ESBRIET [Suspect]
     Active Substance: PIRFENIDONE
     Indication: BACK PAIN
     Route: 048
  5. ASTEPRO [Concomitant]
     Active Substance: AZELASTINE HYDROCHLORIDE
  6. DIFLUCAN [Concomitant]
     Active Substance: FLUCONAZOLE
  7. DALMANE [Concomitant]
     Active Substance: FLURAZEPAM HYDROCHLORIDE
  8. PROAIR HFA [Concomitant]
     Active Substance: ALBUTEROL SULFATE
  9. FORTEO [Concomitant]
     Active Substance: TERIPARATIDE
  10. ESBRIET [Suspect]
     Active Substance: PIRFENIDONE
     Indication: IDIOPATHIC PULMONARY FIBROSIS
     Route: 048
  11. TYLENOL [Concomitant]
     Active Substance: ACETAMINOPHEN
     Indication: PAIN
  12. XANAX [Concomitant]
     Active Substance: ALPRAZOLAM
  13. ESTRATEST [Concomitant]
     Active Substance: ESTROGENS, ESTERIFIED\METHYLTESTOSTERONE
     Dosage: 1.25?2.5 MG
  14. PRILOSEC [Concomitant]
     Active Substance: OMEPRAZOLE MAGNESIUM
  15. ESBRIET [Suspect]
     Active Substance: PIRFENIDONE
     Indication: MEDIASTINAL ABSCESS
  16. PREDNISONE. [Suspect]
     Active Substance: PREDNISONE
     Indication: PRODUCT USED FOR UNKNOWN INDICATION
     Dosage: ALTERNATE 5 MG AND 10 MG EVERY OTHER DAY ;ONGOING: YES
     Route: 065
  17. VITAMIN C [Concomitant]
     Active Substance: ASCORBIC ACID
  18. VITAMIN B12 [Concomitant]
     Active Substance: CYANOCOBALAMIN
     Dosage: 1000 MG/M
  19. NEXIUM [Concomitant]
     Active Substance: ESOMEPRAZOLE MAGNESIUM
  20. FERROUS SULFATE. [Concomitant]
     Active Substance: FERROUS SULFATE
  21. CHOLECALCIFEROL [Concomitant]
     Active Substance: CHOLECALCIFEROL
  22. OXYGEN. [Concomitant]
     Active Substance: OXYGEN
  23. ESBRIET [Suspect]
     Active Substance: PIRFENIDONE
     Indication: LUNG ABSCESS
  24. PLAVIX [Concomitant]
     Active Substance: CLOPIDOGREL BISULFATE
     Indication: PRODUCT USED FOR UNKNOWN INDICATION
  25. SYNTHROID [Concomitant]
     Active Substance: LEVOTHYROXINE SODIUM
  26. DELTASONE [Concomitant]
     Active Substance: PREDNISONE
  27. ESBRIET [Suspect]
     Active Substance: PIRFENIDONE
     Indication: IDIOPATHIC PULMONARY FIBROSIS
     Route: 048
  28. ANACIN (ASPIRIN\CAFFEINE) [Concomitant]
     Active Substance: ASPIRIN\CAFFEINE
     Dosage: 400?31 MG
  29. CRANBERRY EXTRACT [Concomitant]
     Active Substance: CRANBERRY
  30. METOPROLOL TARTRATE. [Concomitant]
     Active Substance: METOPROLOL TARTRATE
  31. BYSTOLIC [Concomitant]
     Active Substance: NEBIVOLOL HYDROCHLORIDE
  32. SYMBICORT [Concomitant]
     Active Substance: BUDESONIDE\FORMOTEROL FUMARATE DIHYDRATE
  33. RECLAST [Concomitant]
     Active Substance: ZOLEDRONIC ACID
  34. ASPIRIN. [Concomitant]
     Active Substance: ASPIRIN
  35. NORVASC [Concomitant]
     Active Substance: AMLODIPINE BESYLATE
  36. ESTRACE [Concomitant]
     Active Substance: ESTRADIOL
     Dosage: 0.01% CREAM
  37. PHENERGAN [Concomitant]
     Active Substance: PROMETHAZINE HYDROCHLORIDE
  38. ZOCOR [Concomitant]
     Active Substance: SIMVASTATIN
  39. LEVOTHYROXINE. [Concomitant]
     Active Substance: LEVOTHYROXINE

REACTIONS (4)
  - Weight decreased [Not Recovered/Not Resolved]
  - Malaise [Recovering/Resolving]
  - Pneumonia [Unknown]
  - Gastric disorder [Not Recovered/Not Resolved]

NARRATIVE: CASE EVENT DATE: 201812
